FAERS Safety Report 7989832-0 (Version None)
Quarter: 2011Q4

REPORT INFORMATION
  Report Type: 
  Country: None (occurrence: None)
  Receive Date: 20111219
  Receipt Date: 20110718
  Transmission Date: 20120403
  Serious: No
  Sender: FDA-Public Use
  Company Number: US-ASTRAZENECA-2011SE42980

PATIENT
  Age: 54 Year

DRUGS (9)
  1. GLIMETIRIDE [Concomitant]
  2. ASPIRIN [Concomitant]
  3. HYDROCHLOROTHIAZIDE [Concomitant]
  4. LEVEMIR [Concomitant]
  5. LORATADINE [Concomitant]
  6. CELEBREX [Concomitant]
  7. CRESTOR [Suspect]
     Route: 048
  8. METFORMIN HCL [Concomitant]
  9. AVAPRO [Concomitant]

REACTIONS (5)
  - DIABETES MELLITUS [None]
  - LUNG DISORDER [None]
  - ARTHRITIS [None]
  - HYPERTENSION [None]
  - PAIN [None]
